FAERS Safety Report 8174150-0 (Version None)
Quarter: 2012Q1

REPORT INFORMATION
  Report Type: 
  Country: None (occurrence: None)
  Receive Date: 20120224
  Receipt Date: 20120216
  Transmission Date: 20120608
  Serious: Yes (Disabling)
  Sender: FDA-Public Use
  Company Number: AUR-APL-2012-00982

PATIENT
  Age: 81 Year
  Sex: Male
  Weight: 81 kg

DRUGS (7)
  1. MEBEVERINE HYDROCHLORIDE(MEBEVERINE HYDROCHLORIDE) [Concomitant]
  2. ISPAGHULA HUSK (PLANTAGO OVATA HUSK) [Concomitant]
  3. VISCOTEARS(CARBOMER) [Concomitant]
  4. FINASTERIDE [Suspect]
     Indication: PRODUCT USED FOR UNKNOWN INDICATION
     Dates: start: 20111116
  5. WARFARIN SODIUM [Concomitant]
  6. SOTALOL HCL [Concomitant]
  7. DOXAZOSIN MESYLATE [Concomitant]

REACTIONS (1)
  - URINE FLOW DECREASED [None]
